FAERS Safety Report 8493555 (Version 11)
Quarter: 2013Q4

REPORT INFORMATION
  Report Type: Report from Study
  Country: FR (occurrence: FR)
  Receive Date: 20120404
  Receipt Date: 20131022
  Transmission Date: 20140711
  Serious: Yes (Hospitalization)
  Sender: FDA-Public Use
  Company Number: FR-ROCHE-1050806

PATIENT
  Age: 54 Year
  Sex: Female
  Weight: 52 kg

DRUGS (31)
  1. TRASTUZUMAB [Suspect]
     Indication: BREAST CANCER
     Dosage: LAST DOSE PRIOR TO EDEMA ON 14 DEC 2011, LAST DOSE 312 MG
     Route: 042
     Dates: start: 20111123
  2. DOCETAXEL [Suspect]
     Indication: BREAST CANCER
     Dosage: LAST DOSE PRIOR TO EDEMA ON 14 DEC 2011, LAST DOSE 153 MG
     Route: 042
     Dates: start: 20111123
  3. ZOMETA [Concomitant]
     Indication: BONE PAIN
     Route: 065
     Dates: start: 20111011
  4. EMEND [Concomitant]
     Indication: PROPHYLAXIS OF NAUSEA AND VOMITING
     Route: 065
     Dates: start: 20111026, end: 20121024
  5. OROPERIDYS [Concomitant]
     Indication: PROPHYLAXIS OF NAUSEA AND VOMITING
     Route: 065
     Dates: start: 20111026
  6. FORLAX (FRANCE) [Concomitant]
     Indication: CONSTIPATION
     Route: 065
     Dates: start: 20111026, end: 201204
  7. SOPHIDONE [Concomitant]
     Indication: MUSCULOSKELETAL CHEST PAIN
     Route: 065
     Dates: start: 20111123, end: 201208
  8. LYRICA [Concomitant]
     Indication: MUSCULOSKELETAL CHEST PAIN
     Route: 065
     Dates: start: 20111123, end: 20121024
  9. VERSATIS [Concomitant]
     Indication: MUSCULOSKELETAL CHEST PAIN
     Route: 065
     Dates: start: 20111123, end: 20120104
  10. PARACETAMOL [Concomitant]
     Indication: MUSCULOSKELETAL CHEST PAIN
     Route: 065
     Dates: start: 20111123, end: 20121024
  11. BI-PROFENID [Concomitant]
     Indication: MUSCULOSKELETAL CHEST PAIN
     Route: 065
     Dates: start: 20111123, end: 20111213
  12. INIPOMP [Concomitant]
     Indication: MUSCULOSKELETAL CHEST PAIN
     Route: 065
     Dates: start: 20111123, end: 20111213
  13. PRIMPERAN (FRANCE) [Concomitant]
     Indication: PROPHYLAXIS OF NAUSEA AND VOMITING
     Route: 065
     Dates: start: 20111026
  14. ACUPAN [Concomitant]
     Indication: PAIN
     Route: 065
     Dates: start: 20111214, end: 20120104
  15. SOLUPRED (FRANCE) [Concomitant]
     Indication: PAIN
     Route: 065
     Dates: start: 20111214, end: 20120104
  16. ZOPHREN [Concomitant]
     Indication: PROPHYLAXIS OF NAUSEA AND VOMITING
     Route: 065
     Dates: start: 20111214, end: 20121024
  17. METHYLPREDNISOLONE [Concomitant]
     Indication: PROPHYLAXIS OF NAUSEA AND VOMITING
     Route: 065
     Dates: start: 20111123, end: 20121024
  18. BIOCALYPTOL (FRANCE) [Concomitant]
     Indication: RHONCHI
     Route: 065
     Dates: start: 20111222, end: 20111230
  19. AUGMENTIN [Concomitant]
     Indication: INFLUENZA LIKE ILLNESS
     Route: 065
     Dates: start: 20120106, end: 20120111
  20. AUGMENTIN [Concomitant]
     Indication: ANGINA PECTORIS
     Route: 065
     Dates: start: 201209, end: 20121024
  21. ULTRA LEVURA [Concomitant]
     Indication: INFLUENZA LIKE ILLNESS
     Route: 065
     Dates: start: 20120106, end: 20120111
  22. POLERY ADULTE [Concomitant]
     Indication: INFLUENZA LIKE ILLNESS
     Route: 065
     Dates: start: 20120106, end: 20120111
  23. BECLOMETHASONE [Concomitant]
     Indication: INFLUENZA LIKE ILLNESS
     Route: 065
     Dates: start: 20120106, end: 20120111
  24. ESBERIVEN (FRANCE) [Concomitant]
     Indication: HAEMORRHOIDS
     Dosage: DRUG STOP DATE: //2012
     Route: 065
     Dates: start: 20120215, end: 2012
  25. DUPHALAC [Concomitant]
     Indication: CONSTIPATION
     Route: 065
     Dates: start: 20120215, end: 201204
  26. KABIVEN [Concomitant]
     Indication: DECREASED APPETITE
     Dosage: DRUG STOP DATE: /MAR/2012
     Route: 065
     Dates: start: 20120313
  27. XANAX [Concomitant]
     Indication: ANXIETY
     Route: 065
     Dates: start: 201203, end: 20120402
  28. TOPALGIC (FRANCE) [Concomitant]
     Indication: PAIN
     Route: 065
     Dates: start: 20120325, end: 20120326
  29. EFFERALGAN [Concomitant]
     Indication: BONE PAIN
     Dosage: DRUG STOP DATE: 2012
     Route: 065
     Dates: start: 20120509, end: 2012
  30. SINTROM [Concomitant]
     Indication: THROMBOSIS
     Route: 065
     Dates: start: 201208
  31. ACTISKENAN [Concomitant]
     Indication: BONE PAIN
     Route: 065
     Dates: start: 2012

REACTIONS (2)
  - Fatigue [Recovered/Resolved]
  - Oedema [Recovered/Resolved]
